FAERS Safety Report 11159457 (Version 1)
Quarter: 2015Q2

REPORT INFORMATION
  Report Type: Report from Study
  Country: FR (occurrence: FR)
  Receive Date: 20150603
  Receipt Date: 20150603
  Transmission Date: 20150821
  Serious: Yes (Hospitalization)
  Sender: FDA-Public Use
  Company Number: FR-GLAXOSMITHKLINE-FR2015GSK076280

PATIENT
  Sex: Male

DRUGS (9)
  1. KREDEX [Concomitant]
     Active Substance: CARVEDILOL
  2. PLAVIX [Concomitant]
     Active Substance: CLOPIDOGREL BISULFATE
  3. ELISOR [Concomitant]
     Active Substance: PRAVASTATIN SODIUM
  4. FUROSEMIDE. [Concomitant]
     Active Substance: FUROSEMIDE
  5. PREVISCAN (NOS) [Concomitant]
  6. OMEGA-3-ACID ETHYL ESTERS. [Suspect]
     Active Substance: OMEGA-3-ACID ETHYL ESTERS
     Indication: ISCHAEMIC HEART DISEASE PROPHYLAXIS
     Dosage: UNK
     Dates: start: 20090123
  7. INSPRA [Concomitant]
     Active Substance: EPLERENONE
  8. KARDEGIC [Concomitant]
     Active Substance: ASPIRIN LYSINE
  9. RAMIPRIL. [Concomitant]
     Active Substance: RAMIPRIL

REACTIONS (1)
  - Neoplasm [Unknown]

NARRATIVE: CASE EVENT DATE: 20090403
